FAERS Safety Report 25182390 (Version 1)
Quarter: 2025Q2

REPORT INFORMATION
  Report Type: Spontaneous
  Country: US (occurrence: US)
  Receive Date: 20250410
  Receipt Date: 20250410
  Transmission Date: 20250717
  Serious: No
  Sender: KINIKSA PHARMACEUTICALS
  Company Number: US-Kiniksa Pharmaceuticals Ltd.-2024KPU002010

PATIENT
  Age: 73 Year
  Sex: Male

DRUGS (1)
  1. ARCALYST [Suspect]
     Active Substance: RILONACEPT
     Indication: Product used for unknown indication
     Route: 058
     Dates: start: 20241024, end: 20241024

REACTIONS (2)
  - Urine odour abnormal [Unknown]
  - Chromaturia [Unknown]

NARRATIVE: CASE EVENT DATE: 20241024
